FAERS Safety Report 15643181 (Version 2)
Quarter: 2018Q4

REPORT INFORMATION
  Report Type: Spontaneous
  Country: US (occurrence: US)
  Receive Date: 20181121
  Receipt Date: 20181129
  Transmission Date: 20190205
  Serious: Yes (Other)
  Sender: FDA-Public Use
  Company Number: US-DRREDDYS-USA/USA/18/0105408

PATIENT
  Age: 54 Year
  Sex: Male

DRUGS (3)
  1. DOCETAXEL. [Suspect]
     Active Substance: DOCETAXEL
     Indication: METASTATIC SALIVARY GLAND CANCER
     Route: 065
  2. DOCETAXEL. [Suspect]
     Active Substance: DOCETAXEL
     Dosage: DOSE-REDUCED
  3. CISPLATIN. [Concomitant]
     Active Substance: CISPLATIN
     Indication: METASTATIC SALIVARY GLAND CANCER
     Dosage: 5 CYCLES OF CIS?PLATIN AND DOCETAXEL AND 1 CYCLE OF CISPLATIN ALONE

REACTIONS (2)
  - Toxicity to various agents [Unknown]
  - Neuropathy peripheral [Unknown]
